FAERS Safety Report 22813443 (Version 12)
Quarter: 2024Q4

REPORT INFORMATION
  Report Type: Spontaneous
  Country: JP (occurrence: JP)
  Receive Date: 20230811
  Receipt Date: 20241205
  Transmission Date: 20250114
  Serious: Yes (Hospitalization, Other)
  Sender: BRISTOL-MYERS SQUIBB COMPANY
  Company Number: JP-ONO-2023JP020399

PATIENT
  Age: 65 Year
  Sex: Male

DRUGS (2)
  1. YERVOY [Suspect]
     Active Substance: IPILIMUMAB
     Indication: Non-small cell lung cancer recurrent
     Route: 041
  2. OPDIVO [Suspect]
     Active Substance: NIVOLUMAB
     Indication: Non-small cell lung cancer recurrent
     Dosage: UNK
     Route: 041

REACTIONS (13)
  - Septic shock [Unknown]
  - Influenza [Unknown]
  - Immune-mediated adrenal insufficiency [Unknown]
  - Cyanosis [Unknown]
  - Peripheral coldness [Unknown]
  - Pneumonia [Unknown]
  - Metabolic acidosis [Unknown]
  - Tachypnoea [Unknown]
  - Acute kidney injury [Unknown]
  - Immune-mediated nephritis [Unknown]
  - Immune-mediated pancreatitis [Unknown]
  - Asthma [Unknown]
  - Cytokine release syndrome [Unknown]
